FAERS Safety Report 19025605 (Version 1)
Quarter: 2021Q1

REPORT INFORMATION
  Report Type: Spontaneous
  Country: US (occurrence: US)
  Receive Date: 20210318
  Receipt Date: 20210318
  Transmission Date: 20210420
  Serious: Yes (Hospitalization, Other)
  Sender: FDA-Public Use
  Company Number: US-BAUSCH-BL-2021-007798

PATIENT
  Age: 35 Year
  Sex: Female

DRUGS (3)
  1. EPINEPHRINE. [Suspect]
     Active Substance: EPINEPHRINE
     Indication: CARDIAC ARREST
     Route: 065
  2. VENLAFAXINE [Suspect]
     Active Substance: VENLAFAXINE HYDROCHLORIDE
     Indication: PRODUCT USED FOR UNKNOWN INDICATION
     Route: 065
  3. ATROPINE. [Suspect]
     Active Substance: ATROPINE
     Indication: CARDIAC ARREST
     Route: 065

REACTIONS (6)
  - Cardiomyopathy [Recovered/Resolved]
  - Intentional overdose [Unknown]
  - Therapy non-responder [Unknown]
  - Status epilepticus [Recovered/Resolved]
  - Cardiac failure [Recovered/Resolved]
  - Pupil fixed [Recovered/Resolved]
